FAERS Safety Report 9310512 (Version 1)
Quarter: 2013Q2

REPORT INFORMATION
  Report Type: Spontaneous
  Country: US (occurrence: US)
  Receive Date: 20130527
  Receipt Date: 20130527
  Transmission Date: 20140414
  Serious: Yes (Other)
  Sender: FDA-Public Use
  Company Number: US-PFIZER INC-2013159458

PATIENT
  Sex: Female

DRUGS (1)
  1. TIKOSYN [Suspect]
     Dosage: UNK

REACTIONS (2)
  - Urinary tract infection [Unknown]
  - Fungal infection [Unknown]
